FAERS Safety Report 8086332-7 (Version None)
Quarter: 2012Q1

REPORT INFORMATION
  Report Type: 
  Country: None (occurrence: None)
  Receive Date: 20120128
  Receipt Date: 20110509
  Transmission Date: 20120608
  Serious: No
  Sender: FDA-Public Use
  Company Number: US-ABBOTT-11P-163-0724459-00

PATIENT
  Age: 45 Year
  Sex: Female

DRUGS (6)
  1. HUMIRA [Suspect]
     Indication: RHEUMATOID ARTHRITIS
     Dates: start: 20110401
  2. FLEXERIL [Concomitant]
     Indication: PAIN
     Dosage: DAILY
     Route: 048
  3. SYNTHROID [Concomitant]
     Indication: HYPOTHYROIDISM
     Dosage: 75 MCG DAILY
     Route: 048
  4. AMBIEN [Concomitant]
     Indication: INSOMNIA
     Route: 048
  5. TRAMADOL HCL [Concomitant]
     Indication: PAIN
     Dosage: 50 MG DAILY
     Route: 048
  6. HORMONE THERAPY [Concomitant]
     Indication: HORMONE REPLACEMENT THERAPY
     Dosage: 75 MG DAILY
     Route: 048

REACTIONS (6)
  - MEDICATION ERROR [None]
  - OEDEMA PERIPHERAL [None]
  - JOINT STIFFNESS [None]
  - WEIGHT INCREASED [None]
  - WRONG TECHNIQUE IN DRUG USAGE PROCESS [None]
  - INCORRECT ROUTE OF DRUG ADMINISTRATION [None]
